FAERS Safety Report 9813108 (Version 1)
Quarter: 2014Q1

REPORT INFORMATION
  Report Type: Spontaneous
  Country: US (occurrence: None)
  Receive Date: 20140110
  Receipt Date: 20140110
  Transmission Date: 20141002
  Serious: No
  Sender: FDA-Public Use
  Company Number: None

PATIENT
  Age: 39 Year
  Sex: Female
  Weight: 49.9 kg

DRUGS (2)
  1. RECLAST [Suspect]
     Indication: OSTEOPOROSIS
     Dosage: INTO A VEIN ONCE AN YEAR.
     Route: 042
     Dates: start: 20140108, end: 20140108
  2. RECLAST [Suspect]
     Indication: VITAMIN D DEFICIENCY
     Dosage: INTO A VEIN ONCE AN YEAR.
     Route: 042
     Dates: start: 20140108, end: 20140108

REACTIONS (15)
  - Headache [None]
  - Facial pain [None]
  - Neck pain [None]
  - Back pain [None]
  - Pain in extremity [None]
  - Chest pain [None]
  - Pain in jaw [None]
  - Pyrexia [None]
  - Chills [None]
  - Hyperhidrosis [None]
  - Dizziness [None]
  - Asthenia [None]
  - Fatigue [None]
  - Heart rate increased [None]
  - Hypoaesthesia [None]
